FAERS Safety Report 7297826-6 (Version None)
Quarter: 2011Q1

REPORT INFORMATION
  Report Type: 
  Country: None (occurrence: None)
  Receive Date: 20110217
  Receipt Date: 20091123
  Transmission Date: 20110831
  Serious: Yes (Other)
  Sender: FDA-Public Use
  Company Number: GB-RANBAXY-2009RR-29414

PATIENT
  Age: 52 Year
  Sex: Male

DRUGS (3)
  1. OMEPRAZOLE [Concomitant]
  2. CHAMPIX [Suspect]
     Dosage: 1 MG, BID
     Route: 048
     Dates: start: 20070912
  3. CODEINE [Suspect]
     Indication: BACK PAIN

REACTIONS (2)
  - DRUG SCREEN POSITIVE [None]
  - NAUSEA [None]
